FAERS Safety Report 5583657-1 (Version None)
Quarter: 2008Q1

REPORT INFORMATION
  Report Type: 
  Country: None (occurrence: None)
  Receive Date: 20080102
  Receipt Date: 20071217
  Transmission Date: 20080703
  Serious: Yes (Death, Hospitalization)
  Sender: FDA-Public Use
  Company Number: 2007AD000127

PATIENT
  Age: 6 Year
  Sex: Male

DRUGS (1)
  1. CEPHALEXIN [Suspect]
     Indication: CAT SCRATCH DISEASE

REACTIONS (15)
  - ABDOMINAL PAIN [None]
  - BLOOD SODIUM DECREASED [None]
  - BRAIN DEATH [None]
  - BRAIN HERNIATION [None]
  - BRAIN OEDEMA [None]
  - BRONCHOPNEUMONIA [None]
  - CONVULSION [None]
  - DEHYDRATION [None]
  - ENCEPHALITIS [None]
  - HEADACHE [None]
  - MENTAL STATUS CHANGES [None]
  - PUPIL FIXED [None]
  - PYREXIA [None]
  - RESPIRATORY ARREST [None]
  - VOMITING [None]
